FAERS Safety Report 8921820 (Version 1)
Quarter: 2012Q4

REPORT INFORMATION
  Report Type: 
  Country: US (occurrence: US)
  Receive Date: 20121122
  Receipt Date: 20121122
  Transmission Date: 20130627
  Serious: No
  Sender: FDA-Public Use
  Company Number: US-009507513-1211USA007240

PATIENT
  Sex: Female

DRUGS (1)
  1. SAPHRIS [Suspect]

REACTIONS (1)
  - Drug hypersensitivity [Unknown]
